FAERS Safety Report 7158124-4 (Version None)
Quarter: 2010Q4

REPORT INFORMATION
  Report Type: 
  Country: None (occurrence: None)
  Receive Date: 20101214
  Receipt Date: 20100429
  Transmission Date: 20110411
  Serious: No
  Sender: FDA-Public Use
  Company Number: US-ASTRAZENECA-2010SE19384

PATIENT
  Age: 80 Year
  Sex: Male
  Weight: 102.1 kg

DRUGS (7)
  1. CRESTOR [Suspect]
     Route: 048
     Dates: start: 20091201
  2. SOTALOL [Concomitant]
     Indication: ATRIAL FIBRILLATION
  3. COUMADIN [Concomitant]
     Indication: ATRIAL FIBRILLATION
  4. FLOMAX [Concomitant]
     Indication: DYSURIA
  5. BETHANECHOL [Concomitant]
     Indication: DYSURIA
  6. FLONASE [Concomitant]
     Indication: MULTIPLE ALLERGIES
  7. MICARDIS HCT [Concomitant]
     Indication: ATRIAL FIBRILLATION

REACTIONS (3)
  - ARTHRALGIA [None]
  - INAPPROPRIATE SCHEDULE OF DRUG ADMINISTRATION [None]
  - JOINT SWELLING [None]
